FAERS Safety Report 19580936 (Version 1)
Quarter: 2021Q3

REPORT INFORMATION
  Report Type: Spontaneous
  Country: US (occurrence: US)
  Receive Date: 20210719
  Receipt Date: 20210719
  Transmission Date: 20211014
  Serious: No
  Sender: FDA-Public Use
  Company Number: None

PATIENT
  Sex: Male
  Weight: 59.4 kg

DRUGS (19)
  1. FERROUS SULFATE. [Concomitant]
     Active Substance: FERROUS SULFATE
  2. OXYCODONE [Concomitant]
     Active Substance: OXYCODONE
  3. AKYNZEO [Suspect]
     Active Substance: NETUPITANT\PALONOSETRON HYDROCHLORIDE
     Indication: TONGUE NEOPLASM MALIGNANT STAGE UNSPECIFIED
     Route: 042
  4. LISINOPRIL. [Concomitant]
     Active Substance: LISINOPRIL
  5. DRONABINOL. [Concomitant]
     Active Substance: DRONABINOL
  6. ERBITUX [Concomitant]
     Active Substance: CETUXIMAB
  7. BACLOFEN. [Concomitant]
     Active Substance: BACLOFEN
  8. CARBOPLATIN. [Concomitant]
     Active Substance: CARBOPLATIN
  9. IBUPROFEN. [Concomitant]
     Active Substance: IBUPROFEN
  10. COENZYME Q10 [Concomitant]
     Active Substance: DIETARY SUPPLEMENT\UBIDECARENONE
  11. LIDOCAINE. [Concomitant]
     Active Substance: LIDOCAINE
  12. MULTIVITAMIN [Concomitant]
     Active Substance: VITAMINS
  13. POTASSIUM CHLORIDE. [Concomitant]
     Active Substance: POTASSIUM CHLORIDE
  14. DOXYCYCLINE. [Concomitant]
     Active Substance: DOXYCYCLINE
  15. MAGIC MOUTH MASH [Concomitant]
  16. FLUOROURACIL. [Concomitant]
     Active Substance: FLUOROURACIL
  17. MS CONTIN [Concomitant]
     Active Substance: MORPHINE SULFATE
  18. VITAMIN B12 [Concomitant]
     Active Substance: CYANOCOBALAMIN
  19. LYSINE [Concomitant]
     Active Substance: LYSINE

REACTIONS (1)
  - Disease progression [None]
